FAERS Safety Report 13851370 (Version 1)
Quarter: 2017Q3

REPORT INFORMATION
  Report Type: Spontaneous
  Country: US (occurrence: US)
  Receive Date: 20170810
  Receipt Date: 20170810
  Transmission Date: 20171127
  Serious: Yes (Other)
  Sender: FDA-Public Use
  Company Number: US-ASTRAZENECA-2017SE80302

PATIENT
  Age: 887 Month
  Sex: Female
  Weight: 83.9 kg

DRUGS (12)
  1. OXYGEN. [Concomitant]
     Active Substance: OXYGEN
     Indication: CHRONIC OBSTRUCTIVE PULMONARY DISEASE
     Dosage: 2.0L AS REQUIRED
     Route: 055
  2. SUCRALFATE. [Concomitant]
     Active Substance: SUCRALFATE
     Indication: ABDOMINAL DISCOMFORT
  3. VITAMIN C [Concomitant]
     Active Substance: ASCORBIC ACID
  4. CINNAMON. [Concomitant]
     Active Substance: CINNAMON
  5. SYMBICORT [Suspect]
     Active Substance: BUDESONIDE\FORMOTEROL FUMARATE DIHYDRATE
     Indication: CHRONIC OBSTRUCTIVE PULMONARY DISEASE
     Dosage: 160/4.5 MCG TWO INHALATIONS TWICE A DAY
     Route: 055
     Dates: start: 201612
  6. SPIRVIA [Concomitant]
     Indication: CHRONIC OBSTRUCTIVE PULMONARY DISEASE
     Dates: start: 201612
  7. AMLODIPINE [Concomitant]
     Active Substance: AMLODIPINE BESYLATE
     Indication: BLOOD PRESSURE ABNORMAL
  8. MULTIVITAMIN [Concomitant]
     Active Substance: VITAMINS
  9. METOPROLOL TARTRATE. [Suspect]
     Active Substance: METOPROLOL TARTRATE
     Indication: ARRHYTHMIA
     Route: 065
  10. PAROXETINE. [Concomitant]
     Active Substance: PAROXETINE
     Dosage: DAILY
  11. COZAAR [Concomitant]
     Active Substance: LOSARTAN POTASSIUM
     Indication: BLOOD PRESSURE ABNORMAL
  12. ASPRIN [Concomitant]
     Active Substance: ASPIRIN
     Indication: STENT PLACEMENT
     Dosage: 81.0MG UNKNOWN

REACTIONS (11)
  - Productive cough [Unknown]
  - Pruritus [Unknown]
  - Gastric disorder [Unknown]
  - Dyspnoea [Unknown]
  - Dry skin [Unknown]
  - Rash [Unknown]
  - Neoplasm malignant [Unknown]
  - Visual acuity reduced [Unknown]
  - Contusion [Unknown]
  - Mass [Unknown]
  - Intentional product use issue [Unknown]

NARRATIVE: CASE EVENT DATE: 201706
